FAERS Safety Report 19226884 (Version 4)
Quarter: 2023Q1

REPORT INFORMATION
  Report Type: Spontaneous
  Country: US (occurrence: US)
  Receive Date: 20210506
  Receipt Date: 20230215
  Transmission Date: 20230417
  Serious: Yes (Other)
  Sender: FDA-Public Use
  Company Number: US-PFIZER INC-2021473592

PATIENT
  Age: 77 Year
  Sex: Male
  Weight: 94 kg

DRUGS (24)
  1. PROPRANOLOL HYDROCHLORIDE [Suspect]
     Active Substance: PROPRANOLOL HYDROCHLORIDE
     Dosage: UNK
     Dates: start: 201909
  2. LASIX [Suspect]
     Active Substance: FUROSEMIDE
     Indication: Oedema
     Dosage: 20 MG, DAILY
     Dates: start: 202104
  3. LASIX [Suspect]
     Active Substance: FUROSEMIDE
     Dosage: 40 MG
     Dates: start: 20210418
  4. XALKORI [Concomitant]
     Active Substance: CRIZOTINIB
     Indication: Uveal melanoma
     Dosage: 200 MG, BID (C1D1)
     Route: 065
     Dates: start: 20210326
  5. XALKORI [Concomitant]
     Active Substance: CRIZOTINIB
     Dosage: 200 MG, BID (C1D15)
     Route: 048
     Dates: start: 20210409
  6. XALKORI [Concomitant]
     Active Substance: CRIZOTINIB
     Dosage: 200 MG, BID (C3D1)
     Route: 048
     Dates: start: 20210521, end: 20210704
  7. DAROVASERTIB [Concomitant]
     Active Substance: DAROVASERTIB
     Indication: Uveal melanoma
     Dosage: 300 MG, BID (C1D1)
     Route: 065
     Dates: start: 20210326
  8. DAROVASERTIB [Concomitant]
     Active Substance: DAROVASERTIB
     Dosage: 300 MG, BID (C1D15)
     Route: 048
     Dates: start: 20210409
  9. DAROVASERTIB [Concomitant]
     Active Substance: DAROVASERTIB
     Dosage: 200 MG, BID (C3D1)
     Route: 048
     Dates: start: 20210521
  10. DAROVASERTIB [Concomitant]
     Active Substance: DAROVASERTIB
     Dosage: 200 MG, BID (C6D1)
     Route: 048
     Dates: start: 20210813, end: 20210907
  11. PRAVACHOL [Concomitant]
     Active Substance: PRAVASTATIN SODIUM
     Dosage: UNK
     Dates: start: 2006
  12. OMEPRAZOLE [Concomitant]
     Active Substance: OMEPRAZOLE
     Dosage: UNK
     Dates: start: 2020
  13. MYRBETRIQ [Concomitant]
     Active Substance: MIRABEGRON
     Dosage: UNK
     Dates: start: 202003
  14. ALEVE [Concomitant]
     Active Substance: NAPROXEN SODIUM
     Dosage: UNK
     Dates: start: 202102
  15. TYLENOL [Concomitant]
     Active Substance: ACETAMINOPHEN
     Dosage: UNK
     Dates: start: 202102
  16. FLONASE [Concomitant]
     Active Substance: FLUTICASONE PROPIONATE
     Dosage: UNK
     Dates: start: 202103
  17. AMOXICILLIN [Concomitant]
     Active Substance: AMOXICILLIN
     Dosage: UNK
     Dates: start: 202103, end: 20210325
  18. E-MYCIN [Concomitant]
     Active Substance: ERYTHROMYCIN
     Dosage: UNK
     Dates: start: 20210326, end: 20210601
  19. DOXYCYCLINE [Concomitant]
     Active Substance: DOXYCYCLINE
     Dosage: UNK
     Dates: start: 20210326
  20. LOPERAMIDE HYDROCHLORIDE [Concomitant]
     Active Substance: LOPERAMIDE HYDROCHLORIDE
     Dosage: UNK
     Dates: start: 20210326
  21. OXYBUTYNIN [Concomitant]
     Active Substance: OXYBUTYNIN
     Dosage: UNK
     Dates: start: 20210326
  22. CLARITHROMYCIN [Concomitant]
     Active Substance: CLARITHROMYCIN
     Dosage: UNK
     Dates: start: 20210629, end: 20210713
  23. CLARITIN [Concomitant]
     Active Substance: LORATADINE
     Dosage: UNK
     Dates: start: 20210506
  24. TESSALON [Concomitant]
     Active Substance: BENZONATATE
     Dosage: UNK
     Dates: start: 20210507

REACTIONS (3)
  - Bradycardia [Unknown]
  - Hypotension [Unknown]
  - Dizziness [Unknown]

NARRATIVE: CASE EVENT DATE: 20210416
